FAERS Safety Report 20166773 (Version 1)
Quarter: 2021Q4

REPORT INFORMATION
  Report Type: Spontaneous
  Country: US (occurrence: US)
  Receive Date: 20211209
  Receipt Date: 20211209
  Transmission Date: 20220304
  Serious: No
  Sender: FDA-Public Use
  Company Number: US-PFIZER INC-2021535562

PATIENT
  Age: 53 Year

DRUGS (1)
  1. PREMARIN [Suspect]
     Active Substance: ESTROGENS, CONJUGATED
     Dosage: UNK UNK, 2X/WEEK (SIG: 1/2 (ONE HALF) APPLICATOR TWICE A WEEK)
     Route: 067

REACTIONS (1)
  - Off label use [Unknown]
